FAERS Safety Report 4378210-1 (Version None)
Quarter: 2004Q2

REPORT INFORMATION
  Report Type: 
  Country: None (occurrence: None)
  Receive Date: 20040609
  Receipt Date: 20040521
  Transmission Date: 20050107
  Serious: Yes (Hospitalization)
  Sender: FDA-Public Use
  Company Number: USA040568299

PATIENT
  Age: 9 Year
  Sex: Female
  Weight: 23 kg

DRUGS (5)
  1. STRATTERA [Suspect]
     Indication: ATTENTION DEFICIT/HYPERACTIVITY DISORDER
     Dosage: 40 MG/1 DAY
     Dates: start: 20040501, end: 20040501
  2. PROZAC [Concomitant]
  3. CLONIDINE HCL [Concomitant]
  4. DEPAKOTE [Concomitant]
  5. CONCERTA [Concomitant]

REACTIONS (5)
  - AGGRESSION [None]
  - DISTURBANCE IN SOCIAL BEHAVIOUR [None]
  - HOMICIDAL IDEATION [None]
  - MEDICATION ERROR [None]
  - OPPOSITIONAL DEFIANT DISORDER [None]
